FAERS Safety Report 5824403-3 (Version None)
Quarter: 2008Q3

REPORT INFORMATION
  Report Type: 
  Country: None (occurrence: None)
  Receive Date: 20080728
  Receipt Date: 20080718
  Transmission Date: 20090109
  Serious: Yes (Hospitalization)
  Sender: FDA-Public Use
  Company Number: A0739633A

PATIENT
  Sex: Female

DRUGS (8)
  1. ADVAIR DISKUS 100/50 [Suspect]
     Indication: CHRONIC OBSTRUCTIVE PULMONARY DISEASE
     Route: 055
  2. OXYGEN [Concomitant]
  3. PREDNISONE TAB [Concomitant]
  4. FORADIL [Concomitant]
  5. DUONEB [Concomitant]
  6. COMBIVENT [Concomitant]
  7. PULMICORT-100 [Concomitant]
  8. ACTONEL [Concomitant]

REACTIONS (1)
  - ADVERSE EVENT [None]
